FAERS Safety Report 10146438 (Version 3)
Quarter: 2014Q3

REPORT INFORMATION
  Report Type: Spontaneous
  Country: LB (occurrence: LB)
  Receive Date: 20140501
  Receipt Date: 20140814
  Transmission Date: 20150326
  Serious: Yes (Death)
  Sender: FDA-Public Use
  Company Number: LB-PFIZER INC-2014118593

PATIENT
  Age: 35 Year
  Sex: Male

DRUGS (4)
  1. EFFEXOR XR [Suspect]
     Active Substance: VENLAFAXINE HYDROCHLORIDE
     Indication: OBSESSIVE-COMPULSIVE DISORDER
  2. ZYPREXA [Concomitant]
     Active Substance: OLANZAPINE
     Dosage: HALF TABLET OF 5 MG, UNK
  3. EFFEXOR XR [Suspect]
     Active Substance: VENLAFAXINE HYDROCHLORIDE
     Indication: ANXIETY
     Dosage: 75 MG, 2X/DAY
     Route: 048
     Dates: start: 20140417
  4. EFFEXOR XR [Suspect]
     Active Substance: VENLAFAXINE HYDROCHLORIDE
     Indication: DEPRESSION

REACTIONS (2)
  - Drug effect incomplete [Unknown]
  - Completed suicide [Fatal]

NARRATIVE: CASE EVENT DATE: 201404
